FAERS Safety Report 10580253 (Version 1)
Quarter: 2014Q4

REPORT INFORMATION
  Report Type: Spontaneous
  Country: US (occurrence: US)
  Receive Date: 20141112
  Receipt Date: 20141112
  Transmission Date: 20150529
  Serious: Yes (Life-Threatening, Hospitalization, Other)
  Sender: FDA-Public Use
  Company Number: US-ABBVIE-14P-163-1306431-00

PATIENT
  Sex: Male

DRUGS (1)
  1. ANDROGEL [Suspect]
     Active Substance: TESTOSTERONE
     Indication: PRODUCT USED FOR UNKNOWN INDICATION
     Route: 065

REACTIONS (9)
  - Chest discomfort [Unknown]
  - Dyspnoea [Unknown]
  - Cardiac arrest [Unknown]
  - Coronary artery occlusion [Unknown]
  - Hyperhidrosis [Unknown]
  - Arrhythmia [Unknown]
  - Heart injury [Unknown]
  - Economic problem [Unknown]
  - Limb discomfort [Unknown]

NARRATIVE: CASE EVENT DATE: 20121108
